FAERS Safety Report 7618668-5 (Version None)
Quarter: 2011Q3

REPORT INFORMATION
  Report Type: 
  Country: None (occurrence: None)
  Receive Date: 20110718
  Receipt Date: 20110712
  Transmission Date: 20111222
  Serious: Yes (Other)
  Sender: FDA-Public Use
  Company Number: DE-EISAI INC-E2090-01686-SPO-DE

PATIENT
  Sex: Male

DRUGS (3)
  1. LAMOTRIGINE [Concomitant]
     Route: 048
  2. ZEBINEX [Suspect]
     Route: 048
     Dates: start: 20100101
  3. ZONEGRAN [Suspect]
     Route: 048

REACTIONS (2)
  - EPILEPSY [None]
  - AURA [None]
